FAERS Safety Report 20787127 (Version 14)
Quarter: 2023Q4

REPORT INFORMATION
  Report Type: Report from Study
  Country: AR (occurrence: AR)
  Receive Date: 20220505
  Receipt Date: 20231110
  Transmission Date: 20240110
  Serious: Yes (Other)
  Sender: FDA-Public Use
  Company Number: AR-NOVARTISPH-PHHY2018AR003999

PATIENT
  Sex: Female

DRUGS (6)
  1. COSENTYX [Suspect]
     Active Substance: SECUKINUMAB
     Indication: Psoriatic arthropathy
     Dosage: 300 MG
     Route: 065
     Dates: start: 20170118
  2. COSENTYX [Suspect]
     Active Substance: SECUKINUMAB
     Dosage: 300 MG, QMO
     Route: 058
     Dates: start: 20170228, end: 201710
  3. COSENTYX [Suspect]
     Active Substance: SECUKINUMAB
     Dosage: 300 MG
     Route: 065
     Dates: end: 20180614
  4. COSENTYX [Suspect]
     Active Substance: SECUKINUMAB
     Dosage: 300 MG, QMO
     Route: 058
     Dates: start: 20220614
  5. COSENTYX [Suspect]
     Active Substance: SECUKINUMAB
     Dosage: 150 MG, Q2W (EVERY 15  DAYS)
     Route: 058
     Dates: end: 20231005
  6. DICLOFENAC [Concomitant]
     Active Substance: DICLOFENAC
     Indication: Product used for unknown indication
     Dosage: UNK
     Route: 065

REACTIONS (50)
  - Breast cancer [Unknown]
  - Neoplasm malignant [Unknown]
  - Intestinal perforation [Unknown]
  - Colitis [Unknown]
  - Tooth fracture [Unknown]
  - Psoriatic arthropathy [Unknown]
  - Grip strength decreased [Unknown]
  - Pain in extremity [Unknown]
  - Arthralgia [Unknown]
  - Skin exfoliation [Unknown]
  - Skin haemorrhage [Unknown]
  - Psoriasis [Unknown]
  - Scratch [Unknown]
  - Skin lesion [Unknown]
  - Pruritus [Unknown]
  - Memory impairment [Unknown]
  - COVID-19 [Recovered/Resolved]
  - Peripheral swelling [Unknown]
  - Fear [Unknown]
  - Liver disorder [Unknown]
  - Bone pain [Unknown]
  - Burning sensation [Not Recovered/Not Resolved]
  - Emotional distress [Unknown]
  - Finger deformity [Unknown]
  - Fall [Unknown]
  - Joint injury [Unknown]
  - Head injury [Unknown]
  - COVID-19 [Recovered/Resolved with Sequelae]
  - Ageusia [Unknown]
  - Vomiting [Unknown]
  - Cough [Unknown]
  - Headache [Unknown]
  - Emotional disorder [Unknown]
  - Agitation [Unknown]
  - Fatigue [Unknown]
  - Depression [Unknown]
  - Panic attack [Unknown]
  - Asthenia [Unknown]
  - Anosmia [Unknown]
  - Malaise [Unknown]
  - Breast calcifications [Unknown]
  - Hypovitaminosis [Unknown]
  - Nervousness [Unknown]
  - Insomnia [Unknown]
  - Anxiety [Unknown]
  - Oral herpes [Unknown]
  - Stress [Unknown]
  - Crying [Unknown]
  - Inappropriate schedule of product administration [Unknown]
  - Drug ineffective [Recovering/Resolving]

NARRATIVE: CASE EVENT DATE: 20170101
